FAERS Safety Report 25601791 (Version 3)
Quarter: 2025Q3

REPORT INFORMATION
  Report Type: Spontaneous
  Country: EU (occurrence: EU)
  Receive Date: 20250724
  Receipt Date: 20250911
  Transmission Date: 20251021
  Serious: Yes (Hospitalization, Other)
  Sender: Atnahs Healthcare
  Company Number: EU-BIOGARAN-B25001052

PATIENT

DRUGS (17)
  1. DIAZEPAM [Suspect]
     Active Substance: DIAZEPAM
     Indication: Product used for unknown indication
     Route: 030
  2. HALOPERIDOL [Suspect]
     Active Substance: HALOPERIDOL
     Indication: Product used for unknown indication
     Route: 030
  3. PALIPERIDONE [Suspect]
     Active Substance: PALIPERIDONE
     Indication: Product used for unknown indication
     Route: 030
  4. TOPIRAMATE [Suspect]
     Active Substance: TOPIRAMATE
     Indication: Prader-Willi syndrome
     Dosage: 50 MG PER DAY
     Route: 065
  5. TOPIRAMATE [Suspect]
     Active Substance: TOPIRAMATE
     Indication: Dermatillomania
     Dosage: INCREASED TO 75 MG PER DAY
     Route: 065
  6. TOPIRAMATE [Suspect]
     Active Substance: TOPIRAMATE
     Indication: Eating disorder
     Dosage: REDUCED TO 50 MG PER DAY
     Route: 065
  7. TOPIRAMATE [Suspect]
     Active Substance: TOPIRAMATE
     Indication: Off label use
     Route: 065
  8. PAROXETINE [Suspect]
     Active Substance: PAROXETINE
     Indication: Depressive symptom
     Dosage: 20 MG PER DAY
     Route: 065
  9. PAROXETINE [Suspect]
     Active Substance: PAROXETINE
     Dosage: 30 MG PER DAY
     Route: 065
  10. ALPRAZOLAM [Suspect]
     Active Substance: ALPRAZOLAM
     Indication: Product used for unknown indication
     Dosage: 0.125 MG PER DAY
     Route: 065
  11. PROGESTERONE [Suspect]
     Active Substance: PROGESTERONE
     Indication: Product used for unknown indication
     Dosage: 100 MG PER DAY
     Route: 065
  12. LEVOMEPROMAZINE [Suspect]
     Active Substance: LEVOMEPROMAZINE
     Indication: Product used for unknown indication
     Dosage: 50 MG PER DAY
     Route: 065
  13. ESTRADIOL [Suspect]
     Active Substance: ESTRADIOL
     Indication: Product used for unknown indication
     Dosage: 1 MG PER DAY
     Route: 065
  14. LEVOTHYROXINE [Concomitant]
     Active Substance: LEVOTHYROXINE
     Indication: Hypothyroidism
     Route: 065
  15. BENZALKONIUM CHLORIDE\BENZYL ALCOHOL\CHLORHEXIDINE [Concomitant]
     Active Substance: BENZALKONIUM CHLORIDE\BENZYL ALCOHOL\CHLORHEXIDINE
     Indication: Scratch
     Route: 062
  16. SALINE [Concomitant]
     Active Substance: SODIUM CHLORIDE
     Indication: Scratch
     Route: 062
  17. Lorazepam bedford [Concomitant]
     Indication: Product used for unknown indication
     Route: 065

REACTIONS (10)
  - Pulmonary embolism [Unknown]
  - Dyskinesia [Unknown]
  - Depressed mood [Unknown]
  - Depressive symptom [Recovered/Resolved]
  - Overdose [Recovered/Resolved]
  - Product use issue [Unknown]
  - Intentional product use issue [Unknown]
  - Drug effective for unapproved indication [Unknown]
  - Incorrect dose administered [Unknown]
  - Off label use [Unknown]
